FAERS Safety Report 12564125 (Version 1)
Quarter: 2016Q3

REPORT INFORMATION
  Report Type: Spontaneous
  Country: US (occurrence: US)
  Receive Date: 20160718
  Receipt Date: 20160718
  Transmission Date: 20161109
  Serious: No
  Sender: FDA-Public Use
  Company Number: US-ASTRAZENECA-2016SE66733

PATIENT
  Sex: Female

DRUGS (1)
  1. BRILINTA [Suspect]
     Active Substance: TICAGRELOR
     Indication: ACUTE CORONARY SYNDROME
     Dosage: EVERY 12 HOURS
     Route: 048
     Dates: start: 20140413, end: 20160305

REACTIONS (1)
  - Dissociative disorder [Unknown]

NARRATIVE: CASE EVENT DATE: 20160310
